FAERS Safety Report 12765973 (Version 1)
Quarter: 2016Q3

REPORT INFORMATION
  Report Type: Spontaneous
  Country: JP (occurrence: JP)
  Receive Date: 20160921
  Receipt Date: 20160921
  Transmission Date: 20161109
  Serious: Yes (Other)
  Sender: FDA-Public Use
  Company Number: JP-GLAXOSMITHKLINE-JP2016JPN023058

PATIENT
  Age: 66 Year
  Sex: Female

DRUGS (4)
  1. LOXOPROFEN NA [Concomitant]
     Active Substance: LOXOPROFEN SODIUM
     Indication: MUSCULOSKELETAL PAIN
     Dosage: 60 MG, PRN
  2. LOXOPROFEN NA [Concomitant]
     Active Substance: LOXOPROFEN SODIUM
     Indication: GROIN PAIN
  3. PIPERACILLIN SODIUM + TAZOBACTAM SODIUM [Concomitant]
     Dosage: 3 DF, 1D
  4. VALTREX [Suspect]
     Active Substance: VALACYCLOVIR HYDROCHLORIDE
     Indication: HERPES ZOSTER
     Dosage: 3 G, 1D
     Route: 048

REACTIONS (8)
  - Urine output decreased [Unknown]
  - Oedema [Unknown]
  - Altered state of consciousness [Recovering/Resolving]
  - Acute kidney injury [Unknown]
  - Dysarthria [Unknown]
  - Feeling abnormal [Unknown]
  - Depressed level of consciousness [Recovering/Resolving]
  - Speech disorder [Recovering/Resolving]
